FAERS Safety Report 14480124 (Version 2)
Quarter: 2018Q1

REPORT INFORMATION
  Report Type: Spontaneous
  Country: US (occurrence: US)
  Receive Date: 20180202
  Receipt Date: 20180212
  Transmission Date: 20180509
  Serious: Yes (Hospitalization)
  Sender: FDA-Public Use
  Company Number: US-SA-2018SA018951

PATIENT
  Age: 27 Year
  Sex: Female
  Weight: 82 kg

DRUGS (2)
  1. CLOMIFENE CITRATE [Suspect]
     Active Substance: CLOMIPHENE
     Indication: OVARIAN HYPERFUNCTION
     Dosage: FOR FIVE DAYS EVERY MONTH; TOTAL LIFETIME DOSE 32,500 MG
     Route: 065
  2. L-THYROXIN [Concomitant]
     Active Substance: LEVOTHYROXINE SODIUM
     Indication: HYPOTHYROIDISM
     Route: 065

REACTIONS (2)
  - Uterine cancer [Recovered/Resolved]
  - Uterine mass [Recovered/Resolved]
